FAERS Safety Report 9349871 (Version 3)
Quarter: 2013Q3

REPORT INFORMATION
  Report Type: Spontaneous
  Country: IT (occurrence: IT)
  Receive Date: 20130614
  Receipt Date: 20130802
  Transmission Date: 20140515
  Serious: Yes (Life-Threatening, Hospitalization)
  Sender: FDA-Public Use
  Company Number: IT-ASTRAZENECA-2013SE42683

PATIENT
  Age: 27189 Day
  Sex: Female

DRUGS (3)
  1. SEROQUEL [Suspect]
     Indication: SUICIDE ATTEMPT
     Route: 048
     Dates: start: 20130503, end: 20130503
  2. SEROQUEL [Suspect]
     Indication: DEPRESSION
     Route: 048
     Dates: start: 20130503, end: 20130503
  3. TAVOR [Suspect]
     Indication: SUICIDE ATTEMPT
     Route: 048
     Dates: start: 20130503, end: 20130503

REACTIONS (5)
  - Suicide attempt [Recovered/Resolved]
  - Drug abuse [Recovering/Resolving]
  - Sopor [Recovering/Resolving]
  - Hypotension [Recovering/Resolving]
  - Lethargy [Recovering/Resolving]
